FAERS Safety Report 22297024 (Version 1)
Quarter: 2023Q2

REPORT INFORMATION
  Report Type: Spontaneous
  Country: US (occurrence: US)
  Receive Date: 20230509
  Receipt Date: 20230509
  Transmission Date: 20230721
  Serious: No
  Sender: FDA-Public Use
  Company Number: US-BRISTOL-MYERS SQUIBB COMPANY-2023-064749

PATIENT
  Age: 72 Year
  Sex: Female

DRUGS (1)
  1. REVLIMID [Suspect]
     Active Substance: LENALIDOMIDE
     Indication: Plasma cell myeloma in remission
     Dosage: FREQ:  1 TIME A DAY FOR 21DAYS ON THEN 14 DAYS OFF
     Route: 048
     Dates: start: 202210

REACTIONS (2)
  - Hordeolum [Unknown]
  - Off label use [Unknown]

NARRATIVE: CASE EVENT DATE: 20221001
